FAERS Safety Report 11323566 (Version 1)
Quarter: 2015Q3

REPORT INFORMATION
  Report Type: Spontaneous
  Country: US (occurrence: None)
  Receive Date: 20150729
  Receipt Date: 20150729
  Transmission Date: 20151125
  Serious: No
  Sender: FDA-Public Use
  Company Number: None

PATIENT
  Age: 19 Year
  Sex: Female
  Weight: 46.1 kg

DRUGS (1)
  1. ZYVOX [Suspect]
     Active Substance: LINEZOLID
     Indication: DRUG THERAPY
     Dosage: 600MG/300ML D5W ?BID?INTRAVENOUS
     Route: 042
     Dates: start: 20150722, end: 20150726

REACTIONS (1)
  - Burning sensation [None]

NARRATIVE: CASE EVENT DATE: 20150725
